FAERS Safety Report 6492228-4 (Version None)
Quarter: 2009Q4

REPORT INFORMATION
  Report Type: 
  Country: None (occurrence: None)
  Receive Date: 20091214
  Receipt Date: 20091202
  Transmission Date: 20100525
  Serious: Yes (Other)
  Sender: FDA-Public Use
  Company Number: US-JNJFOC-20091201031

PATIENT
  Age: 7 Year
  Sex: Male

DRUGS (9)
  1. INFLIXIMAB [Suspect]
     Route: 042
  2. INFLIXIMAB [Suspect]
     Route: 042
  3. INFLIXIMAB [Suspect]
     Route: 042
  4. INFLIXIMAB [Suspect]
     Route: 042
  5. INFLIXIMAB [Suspect]
     Route: 042
  6. INFLIXIMAB [Suspect]
     Indication: UVEITIS
     Dosage: FOR 2 DOSES
     Route: 042
  7. PREDNISOLONE ACETATE [Concomitant]
     Indication: UVEITIS
  8. METHOTREXATE [Concomitant]
     Indication: UVEITIS
  9. MYCOPHENOLATE MOFETIL [Concomitant]
     Indication: UVEITIS

REACTIONS (3)
  - BRONCHOSPASM [None]
  - COUGH [None]
  - INFUSION RELATED REACTION [None]
